FAERS Safety Report 4316174-7 (Version None)
Quarter: 2004Q1

REPORT INFORMATION
  Report Type: 
  Country: None (occurrence: None)
  Receive Date: 20040311
  Receipt Date: 20040311
  Transmission Date: 20041129
  Serious: No
  Sender: FDA-Public Use
  Company Number: None

PATIENT
  Age: 52 Year
  Sex: Male
  Weight: 69.8539 kg

DRUGS (5)
  1. COLAZAL [Suspect]
     Indication: COLITIS ULCERATIVE
     Dosage: 2250 MG 3X DAY ORAL
     Route: 048
     Dates: start: 20040115, end: 20040306
  2. PREDNISONE [Concomitant]
  3. COUMADIN [Concomitant]
  4. FOLIC ACID [Concomitant]
  5. COLOCORT [Concomitant]

REACTIONS (3)
  - DEAFNESS [None]
  - HEADACHE [None]
  - TINNITUS [None]
